FAERS Safety Report 6433272-2 (Version None)
Quarter: 2009Q4

REPORT INFORMATION
  Report Type: 
  Country: None (occurrence: None)
  Receive Date: 20091109
  Receipt Date: 20091029
  Transmission Date: 20100525
  Serious: Yes (Death, Hospitalization)
  Sender: FDA-Public Use
  Company Number: JP-AMGEN-US361235

PATIENT
  Sex: Female
  Weight: 38 kg

DRUGS (8)
  1. ENBREL [Suspect]
     Indication: RHEUMATOID ARTHRITIS
     Route: 058
     Dates: start: 20090126, end: 20090806
  2. PREDONINE [Suspect]
     Route: 048
     Dates: start: 20010101, end: 20090813
  3. LANSOPRAZOLE [Concomitant]
     Route: 048
     Dates: end: 20090815
  4. BIOFERMIN [Concomitant]
     Route: 048
     Dates: end: 20090813
  5. BENET [Concomitant]
     Route: 048
     Dates: end: 20090813
  6. MONTELUKAST SODIUM [Concomitant]
     Route: 048
     Dates: start: 20090604, end: 20090813
  7. LIPITOR [Concomitant]
     Route: 048
     Dates: end: 20090813
  8. MOBIC [Concomitant]
     Route: 048
     Dates: end: 20090813

REACTIONS (6)
  - CARDIO-RESPIRATORY ARREST [None]
  - DISSEMINATED INTRAVASCULAR COAGULATION [None]
  - PNEUMOCYSTIS JIROVECI PNEUMONIA [None]
  - PULMONARY HAEMORRHAGE [None]
  - RENAL IMPAIRMENT [None]
  - RHEUMATOID LUNG [None]
